FAERS Safety Report 23653718 (Version 2)
Quarter: 2024Q1

REPORT INFORMATION
  Report Type: Spontaneous
  Country: AU (occurrence: AU)
  Receive Date: 20240320
  Receipt Date: 20240326
  Transmission Date: 20240409
  Serious: Yes (Other)
  Sender: FDA-Public Use
  Company Number: AU-002147023-NVSC2024AU059091

PATIENT
  Sex: Male

DRUGS (1)
  1. CYCLOSPORINE [Suspect]
     Active Substance: CYCLOSPORINE
     Indication: Aplastic anaemia
     Dosage: UNK
     Route: 065
     Dates: start: 2015

REACTIONS (2)
  - Aplastic anaemia [Unknown]
  - Off label use [Unknown]
